FAERS Safety Report 19689811 (Version 2)
Quarter: 2021Q3

REPORT INFORMATION
  Report Type: Spontaneous
  Country: US (occurrence: US)
  Receive Date: 20210812
  Receipt Date: 20210831
  Transmission Date: 20211014
  Serious: No
  Sender: FDA-Public Use
  Company Number: US-UNITED THERAPEUTICS-UNT-2021-015471

PATIENT
  Age: 51 Year
  Sex: Male
  Weight: 74.83 kg

DRUGS (3)
  1. LETAIRIS [Concomitant]
     Active Substance: AMBRISENTAN
     Indication: PRODUCT USED FOR UNKNOWN INDICATION
     Dosage: UNK
     Route: 065
  2. REMODULIN [Suspect]
     Active Substance: TREPROSTINIL
     Indication: PULMONARY ARTERIAL HYPERTENSION
     Dosage: UNK, CONTINUING
     Route: 041
     Dates: start: 20170513
  3. REMODULIN [Suspect]
     Active Substance: TREPROSTINIL
     Dosage: 0.180 ?G/KG, CONTINUING
     Route: 041

REACTIONS (3)
  - Injection site bruising [Not Recovered/Not Resolved]
  - Night sweats [Not Recovered/Not Resolved]
  - Injection site erosion [Not Recovered/Not Resolved]

NARRATIVE: CASE EVENT DATE: 202107
